FAERS Safety Report 6327751-6 (Version None)
Quarter: 2009Q3

REPORT INFORMATION
  Report Type: 
  Country: None (occurrence: None)
  Receive Date: 20090824
  Receipt Date: 20090814
  Transmission Date: 20100115
  Serious: Yes (Hospitalization)
  Sender: FDA-Public Use
  Company Number: 2009AL004347

PATIENT
  Age: 64 Year
  Sex: Male

DRUGS (37)
  1. DIGOXIN [Suspect]
     Dosage: 0.25MG, DAILY, PO
     Route: 048
     Dates: start: 20060101, end: 20080101
  2. ASPIRIN [Concomitant]
  3. PLAVIX [Concomitant]
  4. ALTACE [Concomitant]
  5. COLCHICINE [Concomitant]
  6. COREG [Concomitant]
  7. FOLIC ACID [Concomitant]
  8. POTASSIUM CHLORIDE [Concomitant]
  9. SPIRIVA [Concomitant]
  10. ZOCOR [Concomitant]
  11. VITAMIN COMPLEX [Concomitant]
  12. NIFEDIPINE [Concomitant]
  13. FOLATE [Concomitant]
  14. PREDNISONE [Concomitant]
  15. NORVASC [Concomitant]
  16. COZAAR [Concomitant]
  17. CARDIZEM [Concomitant]
  18. LASIX [Concomitant]
  19. CRESTOR [Concomitant]
  20. K-DUR [Concomitant]
  21. TOPROL-XL [Concomitant]
  22. DARVOCET [Concomitant]
  23. AMIODARONE [Concomitant]
  24. PROTONIX [Concomitant]
  25. ALBUTEROL [Concomitant]
  26. METOPROLOL [Concomitant]
  27. SUCCINATE [Concomitant]
  28. AEROSOL [Concomitant]
  29. RAMIPRIL [Concomitant]
  30. CLOPIDOGREL [Concomitant]
  31. TIOTROPIUM BROMIDE [Concomitant]
  32. MONOHYDRATE [Concomitant]
  33. ZOLPIDEM [Concomitant]
  34. SIMVASTATIN [Concomitant]
  35. BISULFATE [Concomitant]
  36. IBUPROFEN [Concomitant]
  37. THIAMINE HCL [Concomitant]

REACTIONS (6)
  - CORONARY ARTERY DISEASE [None]
  - ECONOMIC PROBLEM [None]
  - GOUT [None]
  - MULTIPLE INJURIES [None]
  - RESPIRATORY DISTRESS [None]
  - SURGERY [None]
